FAERS Safety Report 6762779-3 (Version None)
Quarter: 2010Q2

REPORT INFORMATION
  Report Type: 
  Country: None (occurrence: None)
  Receive Date: 20100609
  Receipt Date: 20100525
  Transmission Date: 20101027
  Serious: Yes (Hospitalization)
  Sender: FDA-Public Use
  Company Number: B0655058A

PATIENT
  Age: 51 Year
  Sex: Male
  Weight: 64.85 kg

DRUGS (20)
  1. NO THERAPY-VIIV [Suspect]
  2. EPZICOM [Suspect]
     Indication: HIV INFECTION
     Route: 048
     Dates: start: 20080901
  3. REYATAZ [Suspect]
     Indication: HIV INFECTION
     Route: 048
     Dates: start: 20080901
  4. NORVIR [Suspect]
     Indication: HIV INFECTION
     Route: 048
     Dates: start: 20080901
  5. SEPTRA [Concomitant]
     Route: 048
     Dates: start: 20060101
  6. TRAZODONE HCL [Concomitant]
     Route: 048
     Dates: start: 20080101
  7. FLUOXETINE [Concomitant]
     Route: 048
     Dates: start: 20090129
  8. IBUPROFEN [Concomitant]
     Route: 048
     Dates: start: 20060101
  9. ASPIRIN [Concomitant]
     Route: 048
     Dates: start: 20080101
  10. TYLENOL [Concomitant]
     Route: 048
     Dates: start: 20080401
  11. CODEINE SULFATE [Concomitant]
     Route: 048
     Dates: start: 20080401
  12. FLUTICASONE PROPIONATE [Concomitant]
     Route: 055
     Dates: start: 20080101
  13. VALTREX [Concomitant]
     Route: 048
     Dates: start: 20070501
  14. KETOCONAZOLE [Concomitant]
     Route: 061
     Dates: start: 20000212
  15. PSEUDOEPHEDRINE [Concomitant]
     Route: 048
     Dates: start: 20080218
  16. BISACODYL [Concomitant]
     Route: 048
     Dates: start: 20080401
  17. AMITRIPTYLINE [Concomitant]
     Route: 048
     Dates: start: 20080401
  18. CIPROFLOXACIN HYDROCHLORIDE [Concomitant]
     Route: 048
     Dates: start: 20080226
  19. ELAVIL [Concomitant]
     Route: 048
     Dates: start: 20080226
  20. TAC-3 [Concomitant]
     Route: 061
     Dates: start: 20080212

REACTIONS (7)
  - ACUTE SINUSITIS [None]
  - ENCEPHALOPATHY [None]
  - GASTROOESOPHAGEAL REFLUX DISEASE [None]
  - LIVER FUNCTION TEST ABNORMAL [None]
  - PANCYTOPENIA [None]
  - PNEUMONIA STAPHYLOCOCCAL [None]
  - RESPIRATORY FAILURE [None]
